FAERS Safety Report 8781440 (Version 1)
Quarter: 2012Q4

REPORT INFORMATION
  Report Type: 
  Country: BR (occurrence: BR)
  Receive Date: 20120913
  Receipt Date: 20120913
  Transmission Date: 20130627
  Serious: Yes (Hospitalization, Other)
  Sender: FDA-Public Use
  Company Number: PHHY2012BR078314

PATIENT
  Age: 63 Year
  Sex: Female

DRUGS (7)
  1. FORASEQ [Suspect]
     Indication: CHRONIC OBSTRUCTIVE PULMONARY DISEASE
     Dosage: 2 DF, QD
     Dates: start: 2004, end: 2008
  2. SPIRIVA [Suspect]
     Indication: CHRONIC OBSTRUCTIVE PULMONARY DISEASE
     Dosage: 2 DF, QD
  3. FRONTAL [Concomitant]
     Indication: ANXIETY
     Dosage: 0.5 mg, UNK
  4. FRONTAL [Concomitant]
     Dosage: 2 mg, QD
  5. COMBIVENT [Concomitant]
     Dosage: UNK UKN, UNK
  6. BEROTEC [Concomitant]
     Dosage: UNK UKN, UNK
  7. CAPTOPRIL [Concomitant]
     Indication: PROPHYLAXIS
     Dosage: 0.5 tab morning and 0.5 tab at night

REACTIONS (18)
  - Immunodeficiency [Unknown]
  - Emphysema [Unknown]
  - Gastrooesophageal reflux disease [None]
  - Gastritis [None]
  - Hiatus hernia [None]
  - Abdominal distension [None]
  - Hypertension [None]
  - Hallucination [None]
  - Decreased appetite [None]
  - Malaise [None]
  - Pneumonia [None]
  - Lung infection [None]
  - Bacterial infection [None]
  - Daydreaming [None]
  - Flatulence [None]
  - Insomnia [None]
  - Haematochezia [None]
  - Chronic obstructive pulmonary disease [None]
